FAERS Safety Report 20930683 (Version 1)
Quarter: 2022Q2

REPORT INFORMATION
  Report Type: Spontaneous
  Country: US (occurrence: US)
  Receive Date: 20220608
  Receipt Date: 20220608
  Transmission Date: 20220720
  Serious: No
  Sender: FDA-Public Use
  Company Number: US-AMGEN-USASP2022095577

PATIENT
  Age: 59 Year
  Sex: Male

DRUGS (2)
  1. ENBREL [Suspect]
     Active Substance: ETANERCEPT
     Indication: Rheumatoid arthritis
     Dosage: UNK UNK, QWK
     Route: 065
     Dates: start: 2022
  2. HUMIRA [Suspect]
     Active Substance: ADALIMUMAB
     Route: 065

REACTIONS (3)
  - Device difficult to use [Unknown]
  - Wrong technique in product usage process [Unknown]
  - Injection site vesicles [Unknown]

NARRATIVE: CASE EVENT DATE: 20220101
